FAERS Safety Report 9439735 (Version 1)
Quarter: 2013Q3

REPORT INFORMATION
  Report Type: Spontaneous
  Country: US (occurrence: None)
  Receive Date: 20130802
  Receipt Date: 20130802
  Transmission Date: 20140515
  Serious: No
  Sender: FDA-Public Use
  Company Number: None

PATIENT
  Age: 44 Year
  Sex: Female

DRUGS (2)
  1. TACROLIMUS [Suspect]
     Indication: DERMATITIS
     Dosage: APPLY EVERY AM
     Dates: start: 20130627, end: 20130712
  2. PRO AIR INHALER [Concomitant]

REACTIONS (2)
  - Fatigue [None]
  - Loss of consciousness [None]
